FAERS Safety Report 15008728 (Version 1)
Quarter: 2018Q2

REPORT INFORMATION
  Report Type: Spontaneous
  Country: US (occurrence: US)
  Receive Date: 20180521
  Receipt Date: 20180521
  Transmission Date: 20180711
  Serious: No
  Sender: FDA-Public Use
  Company Number: None

PATIENT
  Age: 76 Year
  Sex: Male

DRUGS (14)
  1. AMLODIPINE [Concomitant]
     Active Substance: AMLODIPINE BESYLATE
  2. BISACODYL. [Concomitant]
     Active Substance: BISACODYL
  3. FUROSEMIDE. [Concomitant]
     Active Substance: FUROSEMIDE
  4. OXYCODONE [Concomitant]
     Active Substance: OXYCODONE
  5. ATORVASTATIN [Concomitant]
     Active Substance: ATORVASTATIN
  6. FAMOTIDINE. [Concomitant]
     Active Substance: FAMOTIDINE
  7. QUETIAPINE. [Concomitant]
     Active Substance: QUETIAPINE
  8. INSULIN REGULAR [Concomitant]
     Active Substance: INSULIN NOS
  9. SENNA [Concomitant]
     Active Substance: SENNA LEAF\SENNOSIDES\SENNOSIDES A AND B
  10. HYDRALAZINE [Concomitant]
     Active Substance: HYDRALAZINE HYDROCHLORIDE
  11. HYDROMORPHONE [Concomitant]
     Active Substance: HYDROMORPHONE
  12. ACETAMINOPHEN. [Concomitant]
     Active Substance: ACETAMINOPHEN
  13. HALOPERIDOL. [Concomitant]
     Active Substance: HALOPERIDOL
  14. HEPARIN [Suspect]
     Active Substance: HEPARIN SODIUM
     Indication: THROMBOSIS PROPHYLAXIS
     Route: 042
     Dates: start: 20170309, end: 20170327

REACTIONS (6)
  - Pulse pressure decreased [None]
  - Joint dislocation [None]
  - Heparin-induced thrombocytopenia [None]
  - Peripheral artery thrombosis [None]
  - Procedural haemorrhage [None]
  - Platelet count decreased [None]

NARRATIVE: CASE EVENT DATE: 20180327
